FAERS Safety Report 7124866-X (Version None)
Quarter: 2010Q4

REPORT INFORMATION
  Report Type: 
  Country: None (occurrence: None)
  Receive Date: 20101112
  Receipt Date: 20101026
  Transmission Date: 20110411
  Serious: Yes (Hospitalization)
  Sender: FDA-Public Use
  Company Number: KV201000339

PATIENT
  Age: 72 Year
  Sex: Female

DRUGS (2)
  1. PREDNISOLONE [Suspect]
     Indication: RHEUMATOID ARTHRITIS
     Dosage: 15 MG, QD
  2. METHOTREXATE [Suspect]
     Indication: RHEUMATOID ARTHRITIS
     Dosage: 4 MG/WEEK

REACTIONS (10)
  - ABDOMINAL PAIN LOWER [None]
  - BACTERIURIA [None]
  - DIABETES MELLITUS [None]
  - DIARRHOEA [None]
  - DISSEMINATED INTRAVASCULAR COAGULATION [None]
  - EMPHYSEMATOUS PYELONEPHRITIS [None]
  - ENTEROCOLITIS [None]
  - HAEMODIALYSIS [None]
  - PYREXIA [None]
  - SHOCK [None]
